FAERS Safety Report 9092338 (Version 1)
Quarter: 2013Q1

REPORT INFORMATION
  Report Type: Spontaneous
  Country: US (occurrence: US)
  Receive Date: 20130131
  Receipt Date: 20130131
  Transmission Date: 20140127
  Serious: Yes (Hospitalization, Other)
  Sender: FDA-Public Use
  Company Number: US-TEVA-383246USA

PATIENT
  Age: 88 Year
  Sex: Female

DRUGS (2)
  1. NAPROXEN [Suspect]
     Indication: PAIN
  2. AMIODARONE [Suspect]
     Indication: ATRIAL FIBRILLATION

REACTIONS (7)
  - Duodenal ulcer [Unknown]
  - Gastric ulcer [Unknown]
  - Gastrointestinal haemorrhage [Unknown]
  - Anaemia [Unknown]
  - Asthenia [Unknown]
  - Atrial fibrillation [Unknown]
  - Hypothyroidism [Unknown]
